FAERS Safety Report 9826994 (Version 2)
Quarter: 2014Q1

REPORT INFORMATION
  Report Type: Spontaneous
  Country: JP (occurrence: JP)
  Receive Date: 20140117
  Receipt Date: 20140122
  Transmission Date: 20141002
  Serious: Yes (Hospitalization)
  Sender: FDA-Public Use
  Company Number: JP-B.I. PHARMACEUTICALS,INC./RIDGEFIELD-2014-BI-02052NB

PATIENT
  Age: 101 Year
  Sex: 0

DRUGS (6)
  1. PRAZAXA [Suspect]
     Indication: HYPERTENSION
     Dosage: 150 MG
     Route: 048
  2. PRAZAXA [Suspect]
     Dosage: 220 MG
     Route: 048
     Dates: start: 20131208
  3. SULFAMETHOXAZOLE / SULFAMET HOXAZOLE [Concomitant]
     Dosage: 1 ANZ
     Route: 048
  4. OMEPRAZOLE / OMEPRAZOLE [Concomitant]
     Dosage: 1 ANZ
     Route: 048
  5. FUROSEMIDE / FUROSEMIDE [Concomitant]
     Dosage: 2 ANZ
     Route: 048
  6. SPIRONOLACTONE / SPIRONOLACTONE [Concomitant]
     Dosage: 1 ANZ
     Route: 048

REACTIONS (2)
  - Fracture [Not Recovered/Not Resolved]
  - Fall [Unknown]
